FAERS Safety Report 7713234-5 (Version None)
Quarter: 2011Q3

REPORT INFORMATION
  Report Type: 
  Country: None (occurrence: None)
  Receive Date: 20110826
  Receipt Date: 20110822
  Transmission Date: 20111222
  Serious: Yes (Hospitalization, Other)
  Sender: FDA-Public Use
  Company Number: US-PFIZER INC-2011194864

PATIENT
  Age: 28 Year
  Sex: Female

DRUGS (1)
  1. TRAZODONE HCL [Suspect]
     Dosage: 37.5 MG AND 150 MG TABLETS, UNK

REACTIONS (8)
  - TACHYCARDIA [None]
  - DIARRHOEA [None]
  - BEZOAR [None]
  - DECREASED APPETITE [None]
  - INTENTIONAL OVERDOSE [None]
  - TREMOR [None]
  - INTESTINAL ISCHAEMIA [None]
  - GASTROINTESTINAL NECROSIS [None]
